FAERS Safety Report 11236132 (Version 1)
Quarter: 2015Q3

REPORT INFORMATION
  Report Type: Spontaneous
  Country: US (occurrence: US)
  Receive Date: 20150702
  Receipt Date: 20150702
  Transmission Date: 20151125
  Serious: Yes (Hospitalization)
  Sender: FDA-Public Use
  Company Number: US-LUNDBECK-DKLU2001019

PATIENT
  Sex: Female

DRUGS (2)
  1. SABRIL [Suspect]
     Active Substance: VIGABATRIN
     Indication: EPILEPSY
     Route: 048
     Dates: start: 20110817
  2. SABRIL [Suspect]
     Active Substance: VIGABATRIN
     Dosage: DECREASE BY 250MG EVERY 2 WEEKS UNTIL OFF MEDICATION.
     Route: 048

REACTIONS (1)
  - Malaise [Unknown]
